FAERS Safety Report 8041212-8 (Version None)
Quarter: 2012Q1

REPORT INFORMATION
  Report Type: 
  Country: None (occurrence: None)
  Receive Date: 20120112
  Receipt Date: 20120105
  Transmission Date: 20120608
  Serious: Yes (Hospitalization)
  Sender: FDA-Public Use
  Company Number: DE-JNJFOC-20111200226

PATIENT
  Age: 49 Year
  Sex: Female

DRUGS (11)
  1. DOXORUBICIN HYDROCHLORIDE [Suspect]
     Indication: OVARIAN CANCER METASTATIC
     Route: 042
  2. DOXORUBICIN HYDROCHLORIDE [Suspect]
     Route: 042
  3. DOXORUBICIN HYDROCHLORIDE [Suspect]
     Route: 042
  4. DOXORUBICIN HYDROCHLORIDE [Suspect]
     Route: 042
  5. DOXORUBICIN HYDROCHLORIDE [Suspect]
     Route: 042
     Dates: start: 20111102, end: 20111102
  6. DOXORUBICIN HYDROCHLORIDE [Suspect]
     Route: 042
  7. DOXORUBICIN HYDROCHLORIDE [Suspect]
     Route: 042
  8. NAVOBAN [Suspect]
     Indication: PRODUCT USED FOR UNKNOWN INDICATION
     Route: 042
  9. DOXORUBICIN HYDROCHLORIDE [Suspect]
     Route: 042
  10. DEXAMETHASONE SODIUM PHOSPHATE [Concomitant]
     Route: 042
  11. DOXORUBICIN HYDROCHLORIDE [Suspect]
     Route: 042

REACTIONS (7)
  - NEOPLASM PROGRESSION [None]
  - STAPHYLOCOCCUS TEST POSITIVE [None]
  - PYREXIA [None]
  - PRODUCT QUALITY ISSUE [None]
  - SEPSIS [None]
  - GENERAL PHYSICAL HEALTH DETERIORATION [None]
  - OVARIAN CANCER METASTATIC [None]
